FAERS Safety Report 6403011-X (Version None)
Quarter: 2009Q4

REPORT INFORMATION
  Report Type: 
  Country: None (occurrence: None)
  Receive Date: 20091014
  Receipt Date: 20091014
  Transmission Date: 20100525
  Serious: Yes (Other)
  Sender: FDA-Public Use
  Company Number: None

PATIENT
  Age: 70 Year
  Sex: Female
  Weight: 90.7194 kg

DRUGS (1)
  1. LISINOPRIL [Suspect]
     Dosage: 10 M 1 A DAY
     Dates: start: 20080701, end: 20080901

REACTIONS (3)
  - ABNORMAL DREAMS [None]
  - COUGH [None]
  - INSOMNIA [None]
